FAERS Safety Report 6641051-6 (Version None)
Quarter: 2010Q1

REPORT INFORMATION
  Report Type: 
  Country: None (occurrence: None)
  Receive Date: 20100318
  Receipt Date: 20100112
  Transmission Date: 20100710
  Serious: Yes (Other)
  Sender: FDA-Public Use
  Company Number: IL-ASTRAZENECA-2010SE01423

PATIENT
  Sex: Male

DRUGS (2)
  1. LISINOPRIL [Suspect]
  2. CAPTOPRIL [Suspect]

REACTIONS (1)
  - ANGIOEDEMA [None]
